FAERS Safety Report 5397827-9 (Version None)
Quarter: 2007Q3

REPORT INFORMATION
  Report Type: 
  Country: None (occurrence: None)
  Receive Date: 20070723
  Receipt Date: 20070705
  Transmission Date: 20080115
  Serious: Yes (Death)
  Sender: FDA-Public Use
  Company Number: 2004JP001504

PATIENT
  Age: 60 Year
  Sex: Female

DRUGS (6)
  1. PROGRAF [Suspect]
     Indication: LIVER TRANSPLANT
     Dates: start: 20030119, end: 20030208
  2. PROGRAF [Suspect]
     Indication: LIVER TRANSPLANT
     Dates: start: 20030228, end: 20030719
  3. CYCLOSPORINE [Concomitant]
  4. SIMULECT [Concomitant]
  5. METHYLPREDNISOLONE [Concomitant]
  6. MYCOPHENOLATE MOFETIL [Concomitant]

REACTIONS (7)
  - BRONCHOPULMONARY ASPERGILLOSIS [None]
  - CARDIOMYOPATHY [None]
  - DISEASE RECURRENCE [None]
  - HEPATIC FAILURE [None]
  - HEPATITIS C [None]
  - HEPATITIS CHOLESTATIC [None]
  - LIVER TRANSPLANT REJECTION [None]
